FAERS Safety Report 10642852 (Version 1)
Quarter: 2014Q4

REPORT INFORMATION
  Report Type: Spontaneous
  Country: US (occurrence: None)
  Receive Date: 20141209
  Receipt Date: 20141209
  Transmission Date: 20150529
  Serious: Yes (Other)
  Sender: FDA-Public Use
  Company Number: None

PATIENT
  Age: 51 Year
  Sex: Female
  Weight: 49.44 kg

DRUGS (1)
  1. ENTYVIO [Suspect]
     Active Substance: VEDOLIZUMAB
     Indication: CROHN^S DISEASE
     Dosage: INTO A VEIN
     Dates: start: 20140919, end: 20141003

REACTIONS (9)
  - Weight decreased [None]
  - Condition aggravated [None]
  - Anal fistula [None]
  - Fistula [None]
  - Fatigue [None]
  - Malaise [None]
  - Vaginal fistula [None]
  - Fistula discharge [None]
  - Pyrexia [None]

NARRATIVE: CASE EVENT DATE: 20140919
